FAERS Safety Report 26173060 (Version 2)
Quarter: 2025Q4

REPORT INFORMATION
  Report Type: Report from Study
  Country: CO (occurrence: CO)
  Receive Date: 20251218
  Receipt Date: 20251225
  Transmission Date: 20260119
  Serious: Yes (Hospitalization)
  Sender: ABBVIE
  Company Number: CO-ABBVIE-6589406

PATIENT
  Age: 12 Year
  Sex: Male
  Weight: 62 kg

DRUGS (4)
  1. RINVOQ [Suspect]
     Active Substance: UPADACITINIB
     Indication: Dermatitis atopic
     Dosage: RINVOQ BOTTLE 15 MG
     Route: 048
     Dates: start: 20250918, end: 20251003
  2. FLUTICASONE [Concomitant]
     Active Substance: FLUTICASONE
     Indication: Product used for unknown indication
     Dosage: 27.5 MCG
     Dates: start: 2022
  3. CLOBETASOL [Concomitant]
     Active Substance: CLOBETASOL
     Indication: Product used for unknown indication
     Dates: start: 2022
  4. DESONIDE [Concomitant]
     Active Substance: DESONIDE
     Indication: Product used for unknown indication
     Dosage: TOPICAL
     Dates: start: 2022

REACTIONS (4)
  - Skin infection [Recovering/Resolving]
  - Dermatitis atopic [Unknown]
  - Eczema infected [Recovering/Resolving]
  - Malaise [Unknown]

NARRATIVE: CASE EVENT DATE: 20250101
